FAERS Safety Report 15240123 (Version 3)
Quarter: 2018Q3

REPORT INFORMATION
  Report Type: Report from Study
  Country: US (occurrence: US)
  Receive Date: 20180803
  Receipt Date: 20180823
  Transmission Date: 20181010
  Serious: Yes (Hospitalization, Other)
  Sender: FDA-Public Use
  Company Number: US-GILEAD-2018-0353650

PATIENT
  Age: 38 Year
  Sex: Male

DRUGS (2)
  1. IDELALISIB [Suspect]
     Active Substance: IDELALISIB
     Indication: CHRONIC LYMPHOCYTIC LEUKAEMIA
     Dosage: 150 MG, BID
     Route: 048
     Dates: start: 20180318
  2. RITUXAN [Concomitant]
     Active Substance: RITUXIMAB

REACTIONS (2)
  - Gallbladder disorder [Not Recovered/Not Resolved]
  - Cholecystectomy [Unknown]
